FAERS Safety Report 20183416 (Version 1)
Quarter: 2021Q4

REPORT INFORMATION
  Report Type: Spontaneous
  Country: US (occurrence: US)
  Receive Date: 20211214
  Receipt Date: 20211214
  Transmission Date: 20220304
  Serious: No
  Sender: FDA-Public Use
  Company Number: US-ABBVIE-21K-163-3775557-00

PATIENT
  Age: 69 Year
  Sex: Female

DRUGS (3)
  1. IMBRUVICA [Suspect]
     Active Substance: IBRUTINIB
     Indication: Product used for unknown indication
     Dosage: FOR 1 WEEK
     Route: 048
     Dates: start: 202012, end: 202012
  2. IMBRUVICA [Suspect]
     Active Substance: IBRUTINIB
     Dosage: FOR 1 WEEK
     Route: 048
     Dates: start: 202012, end: 202012
  3. IMBRUVICA [Suspect]
     Active Substance: IBRUTINIB
     Dosage: STARTED ON DEC 2020 OR JAN 2021
     Route: 048

REACTIONS (4)
  - Selective IgA immunodeficiency [Unknown]
  - Blood immunoglobulin G decreased [Unknown]
  - Blood immunoglobulin M decreased [Unknown]
  - Contusion [Not Recovered/Not Resolved]

NARRATIVE: CASE EVENT DATE: 20210202
